FAERS Safety Report 24113813 (Version 2)
Quarter: 2025Q3

REPORT INFORMATION
  Report Type: Report from Study
  Country: CA (occurrence: CA)
  Receive Date: 20240720
  Receipt Date: 20250812
  Transmission Date: 20251020
  Serious: Yes (Hospitalization, Other)
  Sender: SANDOZ
  Company Number: CA-SANDOZ-SDZ2024CA065403

PATIENT
  Sex: Male

DRUGS (3)
  1. HYRIMOZ [Suspect]
     Active Substance: ADALIMUMAB-ADAZ
     Indication: Crohn^s disease
     Dosage: 40 MG, QW (ONCE A WEEK)
     Route: 058
     Dates: start: 20210625
  2. ALEVE [Concomitant]
     Active Substance: NAPROXEN SODIUM
     Indication: Spondylitis
     Route: 065
  3. LIOTHYRONINE SODIUM [Concomitant]
     Active Substance: LIOTHYRONINE SODIUM
     Indication: Spondylitis
     Route: 065

REACTIONS (6)
  - Enterorrhaphy [Unknown]
  - General physical health deterioration [Unknown]
  - Weight decreased [Unknown]
  - Gait disturbance [Unknown]
  - Impaired work ability [Unknown]
  - Off label use [Unknown]
